FAERS Safety Report 6407123-6 (Version None)
Quarter: 2009Q4

REPORT INFORMATION
  Report Type: 
  Country: None (occurrence: None)
  Receive Date: 20091020
  Receipt Date: 20091009
  Transmission Date: 20100525
  Serious: Yes (Other)
  Sender: FDA-Public Use
  Company Number: US-JNJFOC-20091004180

PATIENT
  Sex: Male
  Weight: 68.04 kg

DRUGS (10)
  1. REMICADE [Suspect]
     Indication: CROHN'S DISEASE
     Route: 042
  2. REMICADE [Suspect]
     Indication: ANKYLOSING SPONDYLITIS
     Route: 042
  3. REMICADE [Suspect]
     Indication: COLITIS ULCERATIVE
     Route: 042
  4. CYMBALTA [Concomitant]
     Indication: DEPRESSION
  5. MOBIC [Concomitant]
     Indication: ARTHRALGIA
  6. DARVOCET [Concomitant]
     Indication: PAIN
  7. KLONOPIN [Concomitant]
  8. VITAMIN D3 [Concomitant]
  9. ACTONEL [Concomitant]
  10. ZANTAC [Concomitant]
     Indication: PREMEDICATION

REACTIONS (2)
  - CATARACT [None]
  - URTICARIA [None]
